FAERS Safety Report 7657239-1 (Version None)
Quarter: 2011Q3

REPORT INFORMATION
  Report Type: 
  Country: None (occurrence: None)
  Receive Date: 20110804
  Receipt Date: 20110722
  Transmission Date: 20111222
  Serious: Yes (Hospitalization)
  Sender: FDA-Public Use
  Company Number: PHHY2011MX66525

PATIENT
  Sex: Female

DRUGS (1)
  1. EXFORGE HCT [Suspect]
     Indication: HYPERTENSION
     Dosage: 160/5/12.5 MG, PER DAY
     Dates: start: 20101016, end: 20110225

REACTIONS (3)
  - INTESTINAL HAEMORRHAGE [None]
  - HAEMATOCHEZIA [None]
  - HYPOTENSION [None]
